FAERS Safety Report 11951432 (Version 1)
Quarter: 2016Q1

REPORT INFORMATION
  Report Type: Report from Study
  Country: US (occurrence: US)
  Receive Date: 20160125
  Receipt Date: 20160125
  Transmission Date: 20160526
  Serious: No
  Sender: FDA-Public Use
  Company Number: US-ABBVIE-15K-163-1332192-00

PATIENT
  Age: 39 Year
  Sex: Female
  Weight: 73.55 kg

DRUGS (16)
  1. CIMZIA [Concomitant]
     Active Substance: CERTOLIZUMAB PEGOL
     Indication: CROHN^S DISEASE
     Dates: start: 2011, end: 2014
  2. HUMIRA [Suspect]
     Active Substance: ADALIMUMAB
     Route: 065
  3. HUMIRA [Suspect]
     Active Substance: ADALIMUMAB
     Route: 065
     Dates: start: 2014
  4. NUVIGIL [Concomitant]
     Active Substance: ARMODAFINIL
     Indication: FATIGUE
  5. 6-MP [Concomitant]
     Active Substance: MERCAPTOPURINE
     Indication: CROHN^S DISEASE
  6. HUMIRA [Suspect]
     Active Substance: ADALIMUMAB
     Route: 065
  7. HUMIRA [Suspect]
     Active Substance: ADALIMUMAB
     Indication: CROHN^S DISEASE
     Route: 065
  8. HUMIRA [Suspect]
     Active Substance: ADALIMUMAB
     Route: 065
     Dates: start: 2014, end: 2014
  9. BENTYL [Concomitant]
     Active Substance: DICYCLOMINE HYDROCHLORIDE
     Indication: CROHN^S DISEASE
  10. HUMIRA [Suspect]
     Active Substance: ADALIMUMAB
     Route: 065
     Dates: start: 2014, end: 2014
  11. DILAUDID [Concomitant]
     Active Substance: HYDROMORPHONE HYDROCHLORIDE
     Indication: PAIN
  12. OMEPRAZOLE. [Concomitant]
     Active Substance: OMEPRAZOLE
     Indication: GASTROOESOPHAGEAL REFLUX DISEASE
  13. MORPHINE [Concomitant]
     Active Substance: MORPHINE
     Indication: PAIN
  14. INFLUENZA [Concomitant]
     Active Substance: INFLUENZA VIRUS VACCINE
     Indication: PRODUCT USED FOR UNKNOWN INDICATION
     Dates: start: 2014, end: 2014
  15. PHENERGAN [Concomitant]
     Active Substance: PROMETHAZINE HYDROCHLORIDE
     Indication: CROHN^S DISEASE
  16. ZOFRAN [Concomitant]
     Active Substance: ONDANSETRON HYDROCHLORIDE
     Indication: CROHN^S DISEASE

REACTIONS (4)
  - Respiratory tract congestion [Not Recovered/Not Resolved]
  - Influenza [Recovered/Resolved]
  - Respiratory tract congestion [Recovered/Resolved]
  - Influenza [Not Recovered/Not Resolved]

NARRATIVE: CASE EVENT DATE: 201410
